FAERS Safety Report 24975845 (Version 2)
Quarter: 2025Q1

REPORT INFORMATION
  Report Type: Spontaneous
  Country: US (occurrence: US)
  Receive Date: 20250217
  Receipt Date: 20250228
  Transmission Date: 20250409
  Serious: Yes (Life-Threatening, Hospitalization)
  Sender: TEVA
  Company Number: US-TEVA-VS-3297648

PATIENT
  Age: 26 Year
  Sex: Male

DRUGS (4)
  1. AMOXICILLIN [Suspect]
     Active Substance: AMOXICILLIN
     Indication: Pharyngitis streptococcal
     Route: 065
  2. AZITHROMYCIN [Suspect]
     Active Substance: AZITHROMYCIN
     Indication: Pharyngitis streptococcal
     Route: 065
  3. CIPROFLOXACIN [Suspect]
     Active Substance: CIPROFLOXACIN
     Indication: Pharyngitis streptococcal
     Route: 065
  4. CEFDINIR [Suspect]
     Active Substance: CEFDINIR
     Indication: Post streptococcal glomerulonephritis
     Route: 065

REACTIONS (5)
  - Rebound effect [Unknown]
  - Treatment noncompliance [Unknown]
  - Drug ineffective [Unknown]
  - Pulmonary renal syndrome [Recovered/Resolved]
  - Pruritus [Unknown]
